FAERS Safety Report 10077480 (Version 1)
Quarter: 2014Q2

REPORT INFORMATION
  Report Type: Spontaneous
  Country: US (occurrence: US)
  Receive Date: 20140414
  Receipt Date: 20140414
  Transmission Date: 20141212
  Serious: No
  Sender: FDA-Public Use
  Company Number: US-BANPHARM-20131651

PATIENT
  Age: 57 Year
  Sex: Male
  Weight: 106.58 kg

DRUGS (1)
  1. NAPROXEN SODIUM 220 MG [Suspect]
     Indication: BACK PAIN
     Dosage: 1-2 DF, PRN,
     Route: 048

REACTIONS (1)
  - Energy increased [Unknown]
